FAERS Safety Report 7337733-3 (Version None)
Quarter: 2011Q1

REPORT INFORMATION
  Report Type: 
  Country: None (occurrence: None)
  Receive Date: 20110308
  Receipt Date: 20110302
  Transmission Date: 20110831
  Serious: No
  Sender: FDA-Public Use
  Company Number: US-TEVA-269623USA

PATIENT
  Sex: Female
  Weight: 68.1 kg

DRUGS (3)
  1. AVIANE-28 [Concomitant]
     Indication: CONTRACEPTION
     Route: 048
  2. PLAN B ONE-STEP [Suspect]
     Indication: POST COITAL CONTRACEPTION
     Route: 048
     Dates: start: 20101218, end: 20101218
  3. PLAN B ONE-STEP [Suspect]
     Route: 048
     Dates: start: 20110102, end: 20110102

REACTIONS (3)
  - HEADACHE [None]
  - MENSTRUATION IRREGULAR [None]
  - DIZZINESS [None]
